FAERS Safety Report 7723079-8 (Version None)
Quarter: 2011Q3

REPORT INFORMATION
  Report Type: 
  Country: None (occurrence: None)
  Receive Date: 20110901
  Receipt Date: 20110822
  Transmission Date: 20111222
  Serious: Yes (Hospitalization, Other)
  Sender: FDA-Public Use
  Company Number: US-RANBAXY-2011RR-46739

PATIENT
  Sex: Female

DRUGS (24)
  1. LEVAQUIN [Suspect]
     Indication: PRODUCT USED FOR UNKNOWN INDICATION
     Dosage: UNK
     Route: 065
  2. XANAX [Suspect]
     Indication: PRODUCT USED FOR UNKNOWN INDICATION
     Dosage: 0.5 DF, QD
     Route: 065
  3. LOSARTAN POTASSIUM [Suspect]
     Indication: PRODUCT USED FOR UNKNOWN INDICATION
     Dosage: UNK
     Route: 065
  4. AVAPRO [Suspect]
     Indication: HYPERTENSION
     Dosage: UNK
     Route: 065
  5. CLONIDINE [Concomitant]
     Indication: BLOOD PRESSURE ABNORMAL
     Dosage: 0.5 MG, TID
     Route: 048
  6. HYDROCHLOROTHIAZIDE [Suspect]
     Indication: PRODUCT USED FOR UNKNOWN INDICATION
     Dosage: UNK
     Route: 065
  7. CARDIZEM [Suspect]
     Indication: PRODUCT USED FOR UNKNOWN INDICATION
     Dosage: UNK
     Route: 065
  8. MACROBID [Suspect]
     Indication: PRODUCT USED FOR UNKNOWN INDICATION
     Dosage: UNK
     Route: 065
  9. CIPROFLOXACIN [Suspect]
     Indication: PRODUCT USED FOR UNKNOWN INDICATION
     Dosage: UNK
     Route: 065
  10. LIDOCAINE [Suspect]
     Indication: ANAESTHESIA
     Dosage: UNK
     Route: 065
     Dates: start: 20100513, end: 20100513
  11. REGLAN [Suspect]
     Indication: PRODUCT USED FOR UNKNOWN INDICATION
     Dosage: UNK
     Route: 065
  12. ATACAND [Suspect]
     Indication: PRODUCT USED FOR UNKNOWN INDICATION
     Dosage: 32 MG, UNK
     Route: 065
  13. LISINOPRIL [Suspect]
     Indication: PRODUCT USED FOR UNKNOWN INDICATION
     Dosage: UNK
     Route: 065
  14. DEPAKOTE [Suspect]
     Indication: CONVULSION
     Dosage: UNK
     Route: 065
     Dates: start: 19960101
  15. NORVASC [Suspect]
     Indication: BLOOD PRESSURE INCREASED
     Dosage: 2.5 MG, QD
     Route: 048
     Dates: start: 20100719, end: 20100721
  16. LEVOTHYROXINE SODIUM [Concomitant]
     Indication: PRODUCT USED FOR UNKNOWN INDICATION
     Dosage: UNK
     Route: 065
  17. BENICAR [Suspect]
     Indication: HYPERTENSION
     Dosage: UNK
     Route: 048
     Dates: start: 20070101
  18. NORVASC [Suspect]
     Dosage: 5 MG, BID
     Route: 048
     Dates: start: 20100101
  19. DILANTIN [Suspect]
     Indication: PRODUCT USED FOR UNKNOWN INDICATION
     Dosage: UNK
     Route: 065
     Dates: start: 19960101
  20. BYSTOLIC [Suspect]
     Indication: PRODUCT USED FOR UNKNOWN INDICATION
     Dosage: UNK
     Route: 065
  21. BACTRIM [Suspect]
     Indication: PRODUCT USED FOR UNKNOWN INDICATION
     Dosage: UNK
     Route: 065
  22. FUROSEMIDE [Suspect]
     Indication: PRODUCT USED FOR UNKNOWN INDICATION
     Dosage: UNK
     Route: 065
  23. NORVASC [Suspect]
     Dosage: 5 MG, QD
     Route: 048
     Dates: start: 19970101
  24. DIOVAN [Suspect]
     Indication: PRODUCT USED FOR UNKNOWN INDICATION
     Dosage: UNK
     Route: 065

REACTIONS (14)
  - PALPITATIONS [None]
  - BLOOD COUNT ABNORMAL [None]
  - HEADACHE [None]
  - BURNING SENSATION [None]
  - CYSTITIS [None]
  - TOE OPERATION [None]
  - DIZZINESS [None]
  - LOSS OF CONSCIOUSNESS [None]
  - CHOLECYSTECTOMY [None]
  - ARTERIOSCLEROSIS CORONARY ARTERY [None]
  - BLOOD PRESSURE INCREASED [None]
  - WEIGHT DECREASED [None]
  - INGROWING NAIL [None]
  - ABDOMINAL DISTENSION [None]
